FAERS Safety Report 9285968 (Version 1)
Quarter: 2013Q2

REPORT INFORMATION
  Report Type: Spontaneous
  Country: US (occurrence: US)
  Receive Date: 20130513
  Receipt Date: 20130513
  Transmission Date: 20140414
  Serious: No
  Sender: FDA-Public Use
  Company Number: US-BAYER-2013-046990

PATIENT
  Age: 54 Year
  Sex: Female

DRUGS (2)
  1. GADAVIST [Suspect]
     Indication: NUCLEAR MAGNETIC RESONANCE IMAGING BRAIN
     Dosage: 7.5 ML, UNK
     Route: 042
     Dates: start: 20130215, end: 20130215
  2. GADAVIST [Suspect]
     Indication: NERVOUS SYSTEM DISORDER

REACTIONS (2)
  - Oedema mouth [None]
  - Oral pruritus [None]
